FAERS Safety Report 9927331 (Version 1)
Quarter: 2014Q1

REPORT INFORMATION
  Report Type: Report from Study
  Country: DE (occurrence: DE)
  Receive Date: 20140226
  Receipt Date: 20140226
  Transmission Date: 20141002
  Serious: Yes (Other)
  Sender: FDA-Public Use
  Company Number: PHHY2014DE022927

PATIENT
  Sex: Male
  Weight: 60 kg

DRUGS (6)
  1. ICL670A [Suspect]
     Indication: SERUM FERRITIN DECREASED
     Dosage: 1000 MG, PER DAY
     Dates: start: 20110823
  2. ICL670A [Suspect]
     Dosage: 1500 MG, PER DAY
     Dates: start: 20110922, end: 20111103
  3. ICL670A [Suspect]
     Dosage: 1750 MG, QD
     Dates: start: 20111104, end: 20120203
  4. ICL670A [Suspect]
     Dosage: 1750 MG, QD
     Dates: start: 20120320, end: 20130610
  5. ACIFOL//FOLIC ACID [Concomitant]
     Dosage: 5 MG, DAILY
     Dates: start: 20120320
  6. DECORTIN [Concomitant]
     Dosage: 50 MG, DAILY
     Dates: start: 20120430, end: 20120502

REACTIONS (1)
  - Lip and/or oral cavity cancer [Unknown]
